FAERS Safety Report 25012835 (Version 1)
Quarter: 2025Q1

REPORT INFORMATION
  Report Type: Spontaneous
  Country: FR (occurrence: FR)
  Receive Date: 20250226
  Receipt Date: 20250226
  Transmission Date: 20250408
  Serious: Yes (Hospitalization)
  Sender: MYLAN
  Company Number: FR-MYLANLABS-2025M1014384

PATIENT
  Age: 40 Year
  Sex: Female

DRUGS (6)
  1. TRANEXAMIC ACID [Suspect]
     Active Substance: TRANEXAMIC ACID
     Indication: Epistaxis
     Dosage: 3 GRAM, QD
     Dates: start: 201911
  2. URSODIOL [Suspect]
     Active Substance: URSODIOL
     Indication: Liver disorder
     Dosage: 500 MILLIGRAM, BID
  3. IRON [Suspect]
     Active Substance: IRON
     Indication: Microcytic anaemia
  4. HYDROXYUREA [Suspect]
     Active Substance: HYDROXYUREA
     Indication: Porphyria non-acute
     Dosage: 1000 MILLIGRAM, QD
  5. DEFEROXAMINE [Concomitant]
     Active Substance: DEFEROXAMINE MESYLATE
     Indication: Chelation therapy
  6. DEFEROXAMINE [Concomitant]
     Active Substance: DEFEROXAMINE MESYLATE

REACTIONS (2)
  - Liver disorder [Recovered/Resolved]
  - Drug ineffective [Unknown]

NARRATIVE: CASE EVENT DATE: 20180101
